FAERS Safety Report 22361373 (Version 1)
Quarter: 2023Q2

REPORT INFORMATION
  Report Type: Spontaneous
  Country: CN (occurrence: CN)
  Receive Date: 20230524
  Receipt Date: 20230524
  Transmission Date: 20230722
  Serious: Yes (Hospitalization)
  Sender: FDA-Public Use
  Company Number: CN-002147023-NVSC2023CN115356

PATIENT
  Age: 83 Year
  Sex: Female

DRUGS (7)
  1. TEGRETOL [Suspect]
     Active Substance: CARBAMAZEPINE
     Indication: Cerebrovascular accident
     Dosage: 0.1 G, TID
     Route: 048
     Dates: start: 20230215, end: 20230223
  2. TEGRETOL [Suspect]
     Active Substance: CARBAMAZEPINE
     Indication: Hypertension
  3. TEGRETOL [Suspect]
     Active Substance: CARBAMAZEPINE
     Indication: Cerebral infarction
  4. TEGRETOL [Suspect]
     Active Substance: CARBAMAZEPINE
     Indication: Hypoaesthesia
  5. PREDNISOLONE [Concomitant]
     Active Substance: PREDNISOLONE
     Indication: Antiinflammatory therapy
     Dosage: UNK
     Route: 065
  6. METHYLPREDNISOLONE [Concomitant]
     Active Substance: METHYLPREDNISOLONE
     Indication: Product used for unknown indication
     Dosage: UNK (NEEDLE)
     Route: 065
  7. METHYLPREDNISOLONE [Concomitant]
     Active Substance: METHYLPREDNISOLONE
     Indication: Antiinflammatory therapy
     Dosage: UNK, TID
     Route: 065

REACTIONS (4)
  - Drug eruption [Recovering/Resolving]
  - Rash erythematous [Unknown]
  - Pruritus [Unknown]
  - Product use in unapproved indication [Unknown]

NARRATIVE: CASE EVENT DATE: 20230223
